FAERS Safety Report 17497949 (Version 1)
Quarter: 2020Q1

REPORT INFORMATION
  Report Type: Spontaneous
  Country: US (occurrence: US)
  Receive Date: 20200304
  Receipt Date: 20200304
  Transmission Date: 20200409
  Serious: Yes (Hospitalization)
  Sender: FDA-Public Use
  Company Number: US-MYLANLABS-2020M1024468

PATIENT
  Age: 38 Year
  Sex: Female

DRUGS (2)
  1. FUROSEMIDE. [Suspect]
     Active Substance: FUROSEMIDE
     Indication: MALIGNANT ASCITES
     Dosage: UNK
     Route: 065
  2. SODIUM CHLORIDE. [Suspect]
     Active Substance: SODIUM CHLORIDE
     Indication: HYPONATRAEMIA
     Dosage: UNK
     Route: 065

REACTIONS (5)
  - Malignant ascites [Recovering/Resolving]
  - Condition aggravated [Recovering/Resolving]
  - Hyponatraemia [Recovering/Resolving]
  - Hypovolaemia [Recovering/Resolving]
  - Tachycardia [Recovering/Resolving]
